FAERS Safety Report 4488890-8 (Version None)
Quarter: 2004Q3

REPORT INFORMATION
  Report Type: 
  Country: None (occurrence: None)
  Receive Date: 20040921
  Receipt Date: 20040219
  Transmission Date: 20050211
  Serious: Yes (Other)
  Sender: FDA-Public Use
  Company Number: 163-20785-04010524

PATIENT
  Age: 59 Year
  Sex: Male

DRUGS (6)
  1. THALOMID [Suspect]
     Indication: PROSTATE CANCER
     Dosage: 100 MG, DAILY, ORAL
     Route: 048
     Dates: start: 20031006, end: 20031201
  2. TAXOTERE (DOCETAXEL) (SOLUTION) [Concomitant]
  3. FOLIC ACID [Concomitant]
  4. ARANESP [Concomitant]
  5. SYNTHROID [Concomitant]
  6. VITAMIN B12 [Concomitant]

REACTIONS (1)
  - NEUTROPENIA [None]
